FAERS Safety Report 16918359 (Version 2)
Quarter: 2020Q3

REPORT INFORMATION
  Report Type: Spontaneous
  Country: US (occurrence: US)
  Receive Date: 20191015
  Receipt Date: 20200724
  Transmission Date: 20201102
  Serious: No
  Sender: FDA-Public Use
  Company Number: US-SHIRE-US201933260

PATIENT
  Age: 22 Year
  Sex: Female

DRUGS (2)
  1. TAKHZYRO [Suspect]
     Active Substance: LANADELUMAB-FLYO
     Dosage: UNK
     Route: 065
  2. TAKHZYRO [Suspect]
     Active Substance: LANADELUMAB-FLYO
     Indication: PRODUCT USED FOR UNKNOWN INDICATION
     Dosage: 300 MILLIGRAM, 1X/2WKS, INJECTION
     Route: 050

REACTIONS (2)
  - Hereditary angioedema [Recovered/Resolved]
  - Drug ineffective [Unknown]
